FAERS Safety Report 9671654 (Version 2)
Quarter: 2013Q4

REPORT INFORMATION
  Report Type: Spontaneous
  Country: IT (occurrence: IT)
  Receive Date: 20131106
  Receipt Date: 20131220
  Transmission Date: 20140711
  Serious: Yes (Hospitalization, Other)
  Sender: FDA-Public Use
  Company Number: IT-PFIZER INC-2013315922

PATIENT
  Age: 80 Year
  Sex: Female

DRUGS (2)
  1. ZOLOFT [Suspect]
     Indication: DEPRESSION
     Dosage: 50 MG, 1X/DAY
     Route: 048
     Dates: start: 20130303, end: 20130918
  2. CITALOPRAM [Concomitant]
     Indication: ANXIETY
     Dosage: 10 MG, UNK
     Route: 048
     Dates: start: 20130303, end: 20130918

REACTIONS (3)
  - Electrocardiogram QT prolonged [Recovering/Resolving]
  - Electrocardiogram abnormal [Unknown]
  - Sinus bradycardia [Unknown]
